FAERS Safety Report 5960226-2 (Version None)
Quarter: 2008Q4

REPORT INFORMATION
  Report Type: 
  Country: None (occurrence: None)
  Receive Date: 20081120
  Receipt Date: 20081112
  Transmission Date: 20090506
  Serious: Yes (Hospitalization)
  Sender: FDA-Public Use
  Company Number: US-ELI_LILLY_AND_COMPANY-US200811003129

PATIENT
  Sex: Male

DRUGS (5)
  1. BYETTA [Suspect]
     Dosage: 5 UG, 2/D
     Dates: start: 20060101, end: 20081104
  2. AVANDAMET [Concomitant]
     Dosage: UNK, 2/D
  3. COZAAR [Concomitant]
     Dosage: 50 MG, UNKNOWN
  4. ASPIRIN [Concomitant]
     Dosage: 81 MG, DAILY (1/D)
  5. MULTI-VITAMIN [Concomitant]
     Dosage: UNK, DAILY (1/D)

REACTIONS (1)
  - DIVERTICULITIS [None]
